FAERS Safety Report 9741043 (Version 1)
Quarter: 2013Q4

REPORT INFORMATION
  Report Type: Spontaneous
  Country: GB (occurrence: GB)
  Receive Date: 20131209
  Receipt Date: 20131209
  Transmission Date: 20140711
  Serious: Yes (Other)
  Sender: FDA-Public Use
  Company Number: GB-BAUSCH-BL-2013-006774

PATIENT
  Age: 21 Year
  Sex: Female

DRUGS (3)
  1. MINIMS DEXAMETHASONE SODIUM PHOSPHATE 0.1% [Suspect]
     Indication: PRODUCT USED FOR UNKNOWN INDICATION
     Route: 047
  2. CHLORHEXIDINE GLUCONATE [Interacting]
     Indication: PRODUCT USED FOR UNKNOWN INDICATION
     Route: 065
  3. PRED FORTE [Concomitant]
     Indication: PRODUCT USED FOR UNKNOWN INDICATION

REACTIONS (4)
  - Keratitis [Recovering/Resolving]
  - Condition aggravated [Recovering/Resolving]
  - Corneal deposits [Recovering/Resolving]
  - Drug interaction [Recovering/Resolving]
